FAERS Safety Report 19034378 (Version 3)
Quarter: 2021Q2

REPORT INFORMATION
  Report Type: Spontaneous
  Country: SI (occurrence: SI)
  Receive Date: 20210319
  Receipt Date: 20210416
  Transmission Date: 20210717
  Serious: Yes (Other)
  Sender: FDA-Public Use
  Company Number: SI-REGENERON PHARMACEUTICALS, INC.-2021-35256

PATIENT

DRUGS (1)
  1. EYLEA [Suspect]
     Active Substance: AFLIBERCEPT
     Indication: AGE-RELATED MACULAR DEGENERATION
     Dosage: 1 DF, ONCE; TOTAL OF 14 INJECTIONS PRIOR TO THE EVENT
     Route: 031
     Dates: start: 20210225, end: 20210225

REACTIONS (3)
  - Blindness transient [Recovered/Resolved]
  - Device use issue [Unknown]
  - Intraocular pressure increased [Recovered/Resolved]

NARRATIVE: CASE EVENT DATE: 20210225
